FAERS Safety Report 6159847-6 (Version None)
Quarter: 2009Q2

REPORT INFORMATION
  Report Type: 
  Country: None (occurrence: None)
  Receive Date: 20090420
  Receipt Date: 20090408
  Transmission Date: 20091009
  Serious: Yes (Hospitalization, Other)
  Sender: FDA-Public Use
  Company Number: US-AVENTIS-200911951EU

PATIENT
  Age: 72 Year
  Sex: Male

DRUGS (12)
  1. LASIX [Suspect]
     Route: 048
     Dates: start: 20081212, end: 20081218
  2. CODE UNBROKEN [Concomitant]
     Indication: ACUTE CORONARY SYNDROME
     Route: 048
     Dates: start: 20080502, end: 20080502
  3. CODE UNBROKEN [Concomitant]
     Route: 048
     Dates: start: 20080503, end: 20090119
  4. LOTREL [Concomitant]
     Dates: start: 20080801
  5. METOPROLOL SUCCINATE [Concomitant]
     Dates: start: 20080801
  6. CLOPIDOGREL [Concomitant]
     Dates: start: 20080502
  7. ASPIRIN [Concomitant]
     Dates: start: 19960101
  8. CELEXA [Concomitant]
     Dates: start: 19960101
  9. FLOMAX [Concomitant]
     Dates: start: 19960101
  10. SIMVASTATIN [Concomitant]
     Dates: start: 19960101
  11. SYNTHROID [Concomitant]
     Dates: start: 19960101
  12. HYDROCHLOROTHIAZIDE [Concomitant]
     Dates: start: 19961201

REACTIONS (2)
  - CARDIAC FAILURE [None]
  - DRUG INEFFECTIVE [None]
